FAERS Safety Report 23972707 (Version 1)
Quarter: 2024Q2

REPORT INFORMATION
  Report Type: Spontaneous
  Country: US (occurrence: None)
  Receive Date: 20240613
  Receipt Date: 20240613
  Transmission Date: 20240716
  Serious: Yes (Hospitalization)
  Sender: FDA-Public Use
  Company Number: None

PATIENT
  Sex: Female

DRUGS (1)
  1. CISPLATIN [Suspect]
     Active Substance: CISPLATIN

REACTIONS (6)
  - Throat tightness [None]
  - Pulmonary congestion [None]
  - Pneumonia [None]
  - Fluid retention [None]
  - Dysphagia [None]
  - Blood pressure fluctuation [None]

NARRATIVE: CASE EVENT DATE: 20240603
